FAERS Safety Report 4834658-X (Version None)
Quarter: 2005Q4

REPORT INFORMATION
  Report Type: 
  Country: None (occurrence: None)
  Receive Date: 20051122
  Receipt Date: 20051118
  Transmission Date: 20060501
  Serious: Yes (Disabling, Other)
  Sender: FDA-Public Use
  Company Number: US-GLAXOSMITHKLINE-A0582912A

PATIENT
  Age: 33 Year

DRUGS (6)
  1. WELLBUTRIN [Suspect]
     Indication: DEPRESSION
     Dosage: 450MG PER DAY
     Route: 048
     Dates: start: 20050801
  2. GLUCOPHAGE [Concomitant]
  3. M.V.I. [Concomitant]
  4. DILAUDID [Concomitant]
  5. FISH OIL [Concomitant]
  6. VICODIN [Concomitant]

REACTIONS (1)
  - MIGRAINE [None]
